FAERS Safety Report 18557590 (Version 1)
Quarter: 2020Q4

REPORT INFORMATION
  Report Type: Spontaneous
  Country: US (occurrence: US)
  Receive Date: 20201130
  Receipt Date: 20201130
  Transmission Date: 20210114
  Serious: Yes (Other)
  Sender: FDA-Public Use
  Company Number: US-JIANGSU HENGRUI MEDICINE CO., LTD.-2096412

PATIENT
  Age: 23 Year
  Sex: Female

DRUGS (2)
  1. DOCETAXEL INJECTION USP, 20 MG/1 ML, 80 MG/4 ML, AND 160 MG/8 ML (20 M [Suspect]
     Active Substance: DOCETAXEL
     Indication: OSTEOSARCOMA
  2. GEMCITABINE. [Suspect]
     Active Substance: GEMCITABINE

REACTIONS (5)
  - Capillary leak syndrome [Unknown]
  - Oedema [Unknown]
  - Madarosis [Unknown]
  - Dacryostenosis acquired [Unknown]
  - Product use in unapproved indication [Unknown]
